FAERS Safety Report 4565464-1 (Version None)
Quarter: 2005Q1

REPORT INFORMATION
  Report Type: 
  Country: None (occurrence: None)
  Receive Date: 20050131
  Receipt Date: 20050120
  Transmission Date: 20050727
  Serious: Yes (Hospitalization, Other)
  Sender: FDA-Public Use
  Company Number: US-MERCK-0501USA03545

PATIENT
  Age: 17 Year
  Sex: Female

DRUGS (5)
  1. ELSPAR [Suspect]
     Indication: B-CELL TYPE ACUTE LEUKAEMIA
     Route: 065
  2. ELSPAR [Suspect]
     Route: 065
  3. ELSPAR [Suspect]
     Route: 065
  4. VINCRISTINE SULFATE [Concomitant]
     Indication: B-CELL TYPE ACUTE LEUKAEMIA
     Route: 065
  5. PREDNISONE [Concomitant]
     Indication: B-CELL TYPE ACUTE LEUKAEMIA
     Route: 065

REACTIONS (8)
  - CEREBRAL HAEMORRHAGE [None]
  - CEREBROVASCULAR DISORDER [None]
  - CONVULSION [None]
  - PAPILLOEDEMA [None]
  - PHOTOPHOBIA [None]
  - SUPERIOR SAGITTAL SINUS THROMBOSIS [None]
  - THROMBOSIS [None]
  - TRANSVERSE SINUS THROMBOSIS [None]
